FAERS Safety Report 8050948-4 (Version None)
Quarter: 2012Q1

REPORT INFORMATION
  Report Type: 
  Country: None (occurrence: None)
  Receive Date: 20120117
  Receipt Date: 20120110
  Transmission Date: 20120608
  Serious: Yes (Death, Hospitalization)
  Sender: FDA-Public Use
  Company Number: PHHY2011DE100466

PATIENT
  Sex: Female
  Weight: 75 kg

DRUGS (8)
  1. NAVELBINE [Concomitant]
     Dosage: 2 CYCLES
     Dates: start: 20110907
  2. LEVOTHYROXINE SODIUM [Concomitant]
     Dosage: 1 DF, UNK
  3. LISINOPRIL [Concomitant]
     Dosage: 2 DF, QD
  4. ZOMETA [Suspect]
     Indication: BONE DISORDER
     Dosage: 4 MG, EVERY 4 WEEKS
     Route: 042
     Dates: start: 20110505, end: 20110907
  5. METFORMIN HCL [Concomitant]
     Dosage: 3000 MG, UNK
  6. GEMCITABINE [Concomitant]
     Dosage: 2 CYCLES
     Dates: start: 20110907
  7. ANALGESICS [Concomitant]
  8. DOCETAXEL [Concomitant]
     Dosage: UNK UKN, UNK
     Dates: start: 20110301, end: 20110701

REACTIONS (7)
  - NEOPLASM PROGRESSION [None]
  - DRUG RESISTANCE [None]
  - METASTASES TO LUNG [None]
  - MALIGNANT PLEURAL EFFUSION [None]
  - CARDIAC FAILURE [None]
  - LYMPHANGIOSIS CARCINOMATOSA [None]
  - NEOPLASM MALIGNANT [None]
